FAERS Safety Report 21931985 (Version 1)
Quarter: 2023Q1

REPORT INFORMATION
  Report Type: Spontaneous
  Country: US (occurrence: None)
  Receive Date: 20230131
  Receipt Date: 20230131
  Transmission Date: 20230418
  Serious: Yes (Hospitalization)
  Sender: FDA-Public Use
  Company Number: None

PATIENT
  Age: 68 Year
  Sex: Female
  Weight: 43.99 kg

DRUGS (4)
  1. FLUOROURACIL [Suspect]
     Active Substance: FLUOROURACIL
     Dates: end: 20230109
  2. CAMPTOSAR [Suspect]
     Active Substance: IRINOTECAN HYDROCHLORIDE
     Dates: end: 20230109
  3. LEUCOVORIN CALCIUM [Suspect]
     Active Substance: LEUCOVORIN CALCIUM
     Dates: end: 20230109
  4. ELOXATIN [Suspect]
     Active Substance: OXALIPLATIN
     Dates: end: 20230109

REACTIONS (4)
  - Lower gastrointestinal haemorrhage [None]
  - Anaemia [None]
  - Neurogenic shock [None]
  - Hepatic cancer [None]

NARRATIVE: CASE EVENT DATE: 20230124
